FAERS Safety Report 5129140-9 (Version None)
Quarter: 2006Q4

REPORT INFORMATION
  Report Type: 
  Country: None (occurrence: None)
  Receive Date: 20061011
  Receipt Date: 20060925
  Transmission Date: 20070319
  Serious: Yes (Other)
  Sender: FDA-Public Use
  Company Number: JP200607003892

PATIENT
  Age: 78 Year
  Sex: Female

DRUGS (2)
  1. EVISTA [Suspect]
     Indication: OSTEOPOROSIS
     Dosage: 60 MG, DAILY (1/D), ORAL
     Route: 048
     Dates: start: 20060418, end: 20060712
  2. SORELMON                               (DICLOFENAC SODIUM) [Concomitant]

REACTIONS (1)
  - THROMBOCYTOPENIA [None]
